FAERS Safety Report 5859568-0 (Version None)
Quarter: 2008Q3

REPORT INFORMATION
  Report Type: 
  Country: None (occurrence: None)
  Receive Date: 20080826
  Receipt Date: 20080826
  Transmission Date: 20090109
  Serious: Yes (Life-Threatening, Hospitalization, Other)
  Sender: FDA-Public Use
  Company Number: None

PATIENT
  Age: 73 Year
  Sex: Male
  Weight: 79.3795 kg

DRUGS (3)
  1. NABUMETONE [Suspect]
     Indication: ARTHRALGIA
     Dates: start: 20080812, end: 20080812
  2. NABUMETONE [Suspect]
     Indication: PAIN
     Dates: start: 20080812, end: 20080812
  3. NABUMETONE [Suspect]
     Indication: SOFT TISSUE DISORDER
     Dates: start: 20080812, end: 20080812

REACTIONS (7)
  - ERYTHEMA [None]
  - EYE PRURITUS [None]
  - HYPERSENSITIVITY [None]
  - PHARYNGEAL OEDEMA [None]
  - PRURITUS [None]
  - SWOLLEN TONGUE [None]
  - URTICARIA [None]
